FAERS Safety Report 5611589-9 (Version None)
Quarter: 2008Q1

REPORT INFORMATION
  Report Type: 
  Country: None (occurrence: None)
  Receive Date: 20080201
  Receipt Date: 20080128
  Transmission Date: 20080703
  Serious: Yes (Hospitalization)
  Sender: FDA-Public Use
  Company Number: US-BOEHRINGER INGELHEIM GMBH, GERMANY-2007-BP-21272BP

PATIENT
  Sex: Male
  Weight: 95 kg

DRUGS (10)
  1. BIBR 1048 (DABIGATRAN ETEXILATE) (BLIND) [Suspect]
     Indication: CEREBROVASCULAR ACCIDENT PROPHYLAXIS
     Route: 048
     Dates: start: 20070214
  2. BIBR 1048 (DABIGATRAN ETEXILATE) (BLIND) [Suspect]
     Indication: THROMBOSIS PROPHYLAXIS
  3. LASIX [Suspect]
     Indication: HYPERTENSION
     Route: 048
  4. LASIX [Suspect]
     Indication: CARDIAC FAILURE CONGESTIVE
  5. VASOTEC [Suspect]
     Indication: HYPERTENSION
     Route: 048
  6. VASOTEC [Suspect]
     Indication: CARDIAC FAILURE CONGESTIVE
  7. DIGOXIN [Suspect]
     Indication: ISCHAEMIC CARDIOMYOPATHY
     Route: 048
  8. ALDACTONE [Suspect]
     Indication: HYPERTENSION
     Route: 048
  9. LEVEMIR [Concomitant]
     Indication: DIABETES MELLITUS
     Route: 058
     Dates: start: 20070903
  10. DIGITEK [Concomitant]
     Indication: CARDIAC FAILURE CONGESTIVE
     Route: 048
     Dates: start: 20070902

REACTIONS (4)
  - CARDIAC FAILURE CONGESTIVE [None]
  - DIABETES MELLITUS [None]
  - HYPOTENSION [None]
  - RENAL FAILURE [None]
